FAERS Safety Report 4348633-5 (Version None)
Quarter: 2004Q2

REPORT INFORMATION
  Report Type: 
  Country: None (occurrence: None)
  Receive Date: 20040423
  Receipt Date: 20040413
  Transmission Date: 20050107
  Serious: Yes (Hospitalization)
  Sender: FDA-Public Use
  Company Number: 2004PK00329

PATIENT
  Age: 45 Year
  Sex: Female

DRUGS (2)
  1. NOVALDEX ^ZENECA^ [Suspect]
     Indication: BREAST CANCER
     Dosage: 20 MG DAILY PO
     Route: 048
     Dates: start: 20030821
  2. ZOLADEX [Suspect]
     Indication: BREAST CANCER

REACTIONS (1)
  - CERVIX CARCINOMA STAGE 0 [None]
